FAERS Safety Report 8494014 (Version 4)
Quarter: 2012Q4

REPORT INFORMATION
  Report Type: 
  Country: US (occurrence: US)
  Receive Date: 20120404
  Receipt Date: 20120928
  Transmission Date: 20130627
  Serious: Yes (Hospitalization, Disabling, Other)
  Sender: FDA-Public Use
  Company Number: US-009507513-1203USA03472

PATIENT

DRUGS (4)
  1. FOSAMAX [Suspect]
     Indication: OSTEOPOROSIS
     Dosage: 70 mg, qw
     Route: 048
     Dates: start: 20050214, end: 20080109
  2. FOSAMAX [Suspect]
     Dosage: UNK
     Route: 048
     Dates: start: 200209, end: 200801
  3. ALENDRONATE SODIUM [Suspect]
     Indication: OSTEOPOROSIS
     Dosage: 70 mg, qw
     Route: 048
     Dates: start: 200802, end: 201004
  4. FOSAMAX [Suspect]
     Indication: OSTEOPOROSIS
     Dosage: 10 mg, qd
     Route: 048
     Dates: start: 199802, end: 200001

REACTIONS (30)
  - Femur fracture [Unknown]
  - Osteoporosis [Unknown]
  - Low turnover osteopathy [Unknown]
  - Hand fracture [Unknown]
  - Fall [Unknown]
  - Anaemia macrocytic [Unknown]
  - Tibia fracture [Unknown]
  - Ankle fracture [Unknown]
  - Osteoarthritis [Not Recovered/Not Resolved]
  - Adjustment disorder [Unknown]
  - Fatigue [Unknown]
  - Suicidal ideation [Unknown]
  - Tooth disorder [Unknown]
  - Upper respiratory tract infection [Unknown]
  - Anosmia [Unknown]
  - Joint injury [Unknown]
  - Parathyroid disorder [Unknown]
  - Vitamin D deficiency [Unknown]
  - Headache [Unknown]
  - Pain in extremity [Unknown]
  - Gastrooesophageal reflux disease [Not Recovered/Not Resolved]
  - Open reduction of fracture [Unknown]
  - Viral upper respiratory tract infection [Unknown]
  - Haemorrhoids [Unknown]
  - Cellulitis [Unknown]
  - Anorgasmia [Unknown]
  - Plantar fasciitis [Unknown]
  - Spinal disorder [Unknown]
  - Hyperlipidaemia [Unknown]
  - Bronchospasm [Unknown]
